FAERS Safety Report 8994875 (Version 1)
Quarter: 2012Q4

REPORT INFORMATION
  Report Type: Spontaneous
  Country: CA (occurrence: None)
  Receive Date: 20121221
  Receipt Date: 20121221
  Transmission Date: 20130627
  Serious: Yes (Disabling)
  Sender: FDA-Public Use
  Company Number: TPA2012A09819

PATIENT
  Sex: Female

DRUGS (1)
  1. PREVACID (LANSOPRAZOLE) [Suspect]

REACTIONS (3)
  - Product substitution issue [None]
  - Nausea [None]
  - Vomiting [None]
